FAERS Safety Report 12467725 (Version 2)
Quarter: 2016Q4

REPORT INFORMATION
  Report Type: Spontaneous
  Country: US (occurrence: US)
  Receive Date: 20160615
  Receipt Date: 20161108
  Transmission Date: 20170207
  Serious: No
  Sender: FDA-Public Use
  Company Number: US-GLAXOSMITHKLINE-CHPA2015US008230

PATIENT
  Age: 64 Year
  Sex: Male

DRUGS (2)
  1. PREVACID 24 HR [Suspect]
     Active Substance: LANSOPRAZOLE
     Dosage: UNK
     Route: 048
     Dates: start: 2015
  2. PREVACID 24 HR [Suspect]
     Active Substance: LANSOPRAZOLE
     Indication: HIATUS HERNIA
     Dosage: 1 DF, QD
     Route: 048
     Dates: end: 20151110

REACTIONS (4)
  - Incorrect drug administration duration [Unknown]
  - Wrong technique in product usage process [Unknown]
  - Off label use [Unknown]
  - Chest pain [Unknown]
